FAERS Safety Report 6094982-2 (Version None)
Quarter: 2009Q1

REPORT INFORMATION
  Report Type: 
  Country: None (occurrence: None)
  Receive Date: 20090227
  Receipt Date: 20090217
  Transmission Date: 20090719
  Serious: Yes (Hospitalization)
  Sender: FDA-Public Use
  Company Number: FR-PFIZER INC-2009172417

PATIENT

DRUGS (11)
  1. ALDALIX [Suspect]
     Indication: OEDEMA PERIPHERAL
     Route: 048
     Dates: start: 20080218, end: 20080608
  2. AMLOR [Suspect]
     Route: 048
  3. SOTALOL HCL [Suspect]
     Route: 048
  4. ADANCOR [Suspect]
     Route: 048
     Dates: end: 20080609
  5. KARDEGIC [Concomitant]
     Dosage: UNK
  6. NEXIUM [Concomitant]
     Dosage: UNK
  7. ETIOVEN [Concomitant]
     Dosage: UNK
     Dates: start: 20071201
  8. BETASERC [Concomitant]
     Dosage: UNK
     Dates: start: 20080407
  9. NAFTILUX [Concomitant]
     Dosage: UNK
     Dates: start: 20080407
  10. STILNOX [Concomitant]
     Dosage: UNK
     Dates: start: 20080407
  11. LEXOMIL [Concomitant]
     Dates: start: 20080407

REACTIONS (5)
  - BRADYCARDIA [None]
  - DEHYDRATION [None]
  - ELECTROCARDIOGRAM QT PROLONGED [None]
  - HYPOTENSION [None]
  - MALAISE [None]
